FAERS Safety Report 16841514 (Version 1)
Quarter: 2019Q3

REPORT INFORMATION
  Report Type: Report from Study
  Country: BR (occurrence: BR)
  Receive Date: 20190923
  Receipt Date: 20190923
  Transmission Date: 20191005
  Serious: Yes (Hospitalization)
  Sender: FDA-Public Use
  Company Number: PHHO2017BR002306

PATIENT
  Age: 61 Year
  Sex: Female
  Weight: 65.6 kg

DRUGS (3)
  1. LCZ696 [Suspect]
     Active Substance: SACUBITRIL\VALSARTAN
     Indication: CARDIAC FAILURE
     Dosage: 200 MG, BID
     Route: 048
     Dates: start: 20170104, end: 20170129
  2. PLACEBO [Suspect]
     Active Substance: UNSPECIFIED INGREDIENT
     Indication: CARDIAC FAILURE
     Dosage: UNK
     Route: 048
     Dates: start: 20170104, end: 20170129
  3. CLORTALIDONE [Concomitant]
     Indication: HYPERTENSION
     Dosage: 12.5 MG, UNK
     Route: 065
     Dates: start: 201602

REACTIONS (3)
  - Atrial flutter [Recovered/Resolved]
  - Cardiac failure [Recovered/Resolved]
  - Low cardiac output syndrome [Recovered/Resolved]

NARRATIVE: CASE EVENT DATE: 20170119
